FAERS Safety Report 20809025 (Version 1)
Quarter: 2022Q2

REPORT INFORMATION
  Report Type: Spontaneous
  Country: US (occurrence: US)
  Receive Date: 20220510
  Receipt Date: 20220510
  Transmission Date: 20220721
  Serious: Yes (Death, Hospitalization, Other)
  Sender: FDA-Public Use
  Company Number: US-Ipsen Biopharmaceuticals, Inc.-2022-12929

PATIENT
  Age: 62 Year
  Sex: Male

DRUGS (7)
  1. ONIVYDE [Suspect]
     Active Substance: IRINOTECAN HYDROCHLORIDE
     Indication: Pancreatic carcinoma metastatic
     Dosage: 70 MM PER METER SQUARE: 129 MG PER DOSE
     Route: 042
     Dates: start: 20201006, end: 20201201
  2. FLUOROURACIL [Concomitant]
     Active Substance: FLUOROURACIL
     Dosage: OVER 46 HOURS; 4.3 ML PER HOUR
     Route: 042
  3. LEUCOVORIN [Concomitant]
     Active Substance: LEUCOVORIN
     Dosage: OVER 30 MINUTES; 500 ML PER HOUR
     Route: 042
  4. ONDANSETRON [Concomitant]
     Active Substance: ONDANSETRON
     Route: 042
  5. DEXAMETHASONE [Concomitant]
     Active Substance: DEXAMETHASONE
     Route: 042
  6. DIPHENHYDRAMINE [Concomitant]
     Active Substance: DIPHENHYDRAMINE
     Route: 042
  7. FAMOTIDINE [Concomitant]
     Active Substance: FAMOTIDINE
     Route: 042

REACTIONS (4)
  - Death [Fatal]
  - Disease progression [Unknown]
  - Metastases to liver [Unknown]
  - Hospitalisation [Unknown]

NARRATIVE: CASE EVENT DATE: 20201209
